FAERS Safety Report 21554915 (Version 1)
Quarter: 2022Q4

REPORT INFORMATION
  Report Type: Spontaneous
  Country: EG (occurrence: None)
  Receive Date: 20221104
  Receipt Date: 20221104
  Transmission Date: 20230113
  Serious: Yes (Disabling)
  Sender: FDA-Public Use
  Company Number: EG-ROCHE-3211234

PATIENT
  Age: 24 Year
  Sex: Female
  Weight: 56 kg

DRUGS (2)
  1. RIVOTRIL [Suspect]
     Active Substance: CLONAZEPAM
     Indication: Epilepsy
     Dosage: DOSE INCREASED BY 0.5 MG EVERY 4 DAYS UNTIL THE DESIRED EFFECT WAS REACHED STARTING IN 2022
     Route: 048
  2. VALPROATE SODIUM [Concomitant]
     Active Substance: VALPROATE SODIUM

REACTIONS (4)
  - Walking disability [Not Recovered/Not Resolved]
  - Somnolence [Recovered/Resolved]
  - Dizziness [Recovered/Resolved]
  - Muscle twitching [Not Recovered/Not Resolved]
